FAERS Safety Report 8541038-2 (Version None)
Quarter: 2012Q3

REPORT INFORMATION
  Report Type: 
  Country: None (occurrence: None)
  Receive Date: 20120726
  Receipt Date: 20110816
  Transmission Date: 20120928
  Serious: No
  Sender: FDA-Public Use
  Company Number: US-ASTRAZENECA-2011SE49333

PATIENT
  Sex: Male

DRUGS (4)
  1. PAIN MEDICATION [Concomitant]
  2. SEROQUEL XR [Suspect]
     Indication: POST-TRAUMATIC STRESS DISORDER
     Route: 048
  3. SEROQUEL XR [Suspect]
     Indication: BIPOLAR DISORDER
     Route: 048
  4. KLONOPIN [Concomitant]

REACTIONS (6)
  - TACHYPHRENIA [None]
  - INSOMNIA [None]
  - MOOD ALTERED [None]
  - DRUG DOSE OMISSION [None]
  - OFF LABEL USE [None]
  - DEPRESSION [None]
